FAERS Safety Report 17246915 (Version 1)
Quarter: 2020Q1

REPORT INFORMATION
  Report Type: Spontaneous
  Country: US (occurrence: US)
  Receive Date: 20200108
  Receipt Date: 20200108
  Transmission Date: 20200409
  Serious: No
  Sender: FDA-Public Use
  Company Number: US-PFIZER INC-2020005572

PATIENT
  Age: 73 Year
  Sex: Female
  Weight: 68.27 kg

DRUGS (1)
  1. IBRANCE [Suspect]
     Active Substance: PALBOCICLIB
     Indication: BREAST CANCER METASTATIC
     Dosage: 125 MG, CYCLIC(DAYS 1-21 EVERY Q28 DAYS)
     Route: 048
     Dates: start: 20191218

REACTIONS (4)
  - Decreased appetite [Unknown]
  - Cough [Unknown]
  - Pain [Unknown]
  - Alopecia [Unknown]
